FAERS Safety Report 4521916-1 (Version None)
Quarter: 2004Q4

REPORT INFORMATION
  Report Type: 
  Country: None (occurrence: None)
  Receive Date: 20041207
  Receipt Date: 20041207
  Transmission Date: 20050328
  Serious: Yes (Disabling)
  Sender: FDA-Public Use
  Company Number: None

PATIENT
  Age: 34 Year
  Sex: Male
  Weight: 135.1719 kg

DRUGS (5)
  1. RAPTIVA [Suspect]
     Indication: PSORIASIS
     Dosage: 1.4 ML/WK, SUBCUTANEOUS
     Route: 058
     Dates: start: 20040710, end: 20041016
  2. AVANDIA [Concomitant]
  3. ZIAC [Concomitant]
  4. FOLTX [Concomitant]
  5. ZOCOR [Concomitant]

REACTIONS (5)
  - CONDITION AGGRAVATED [None]
  - DIFFICULTY IN WALKING [None]
  - PSORIASIS [None]
  - PSORIATIC ARTHROPATHY [None]
  - RHEUMATOID ARTHRITIS [None]
